FAERS Safety Report 6250125-3 (Version None)
Quarter: 2009Q2

REPORT INFORMATION
  Report Type: 
  Country: None (occurrence: None)
  Receive Date: 20090626
  Receipt Date: 20090611
  Transmission Date: 20091009
  Serious: Yes (Hospitalization)
  Sender: FDA-Public Use
  Company Number: 2008-184819-NL

PATIENT
  Age: 26 Year
  Sex: Female
  Weight: 56.7 kg

DRUGS (3)
  1. NUVARING [Suspect]
     Indication: CONTRACEPTION
     Dosage: 3 WEEKS IN, 1 WEEK OUT
     Dates: start: 20060916, end: 20061004
  2. CALCIUM [Concomitant]
  3. MINOCYDIN [Concomitant]

REACTIONS (12)
  - ALCOHOL USE [None]
  - CEREBRAL HAEMORRHAGE [None]
  - CEREBRAL INFARCTION [None]
  - CEREBROVASCULAR ACCIDENT [None]
  - DRUG DOSE OMISSION [None]
  - MIGRAINE [None]
  - OEDEMA [None]
  - PARTIAL SEIZURES [None]
  - READING DISORDER [None]
  - SINUS TACHYCARDIA [None]
  - SPEECH DISORDER [None]
  - VASCULAR OCCLUSION [None]
